FAERS Safety Report 4283227-1 (Version None)
Quarter: 2004Q1

REPORT INFORMATION
  Report Type: 
  Country: None (occurrence: None)
  Receive Date: 20040129
  Receipt Date: 20040119
  Transmission Date: 20041129
  Serious: Yes (Other)
  Sender: FDA-Public Use
  Company Number: GB-JNJFOC-20040103424

PATIENT
  Age: 6 Year
  Sex: Male
  Weight: 23 kg

DRUGS (3)
  1. RISPERDAL [Suspect]
     Indication: AUTISM
     Dosage: ORAL
     Route: 048
  2. DEXAMFETAMINE (DEXAMFETAMINE) [Concomitant]
  3. MELATONIN (MELATONIN) [Concomitant]

REACTIONS (4)
  - EYE DISORDER [None]
  - FOOD ALLERGY [None]
  - GRUNTING [None]
  - TONGUE OEDEMA [None]
